FAERS Safety Report 19867606 (Version 1)
Quarter: 2021Q3

REPORT INFORMATION
  Report Type: Report from Study
  Country: US (occurrence: US)
  Receive Date: 20210921
  Receipt Date: 20210921
  Transmission Date: 20211014
  Serious: Yes (Hospitalization, Other)
  Sender: FDA-Public Use
  Company Number: US-TAKEDA-US201804275

PATIENT
  Age: 46 Year
  Sex: Female
  Weight: 66 kg

DRUGS (31)
  1. TEDUGLUTIDE [Suspect]
     Active Substance: TEDUGLUTIDE
     Indication: SHORT-BOWEL SYNDROME
     Dosage: 3.62 MILLIGRAM (0.05 MG/KG), 7 DOSES PER WEEK
     Route: 065
     Dates: end: 20181107
  2. TEDUGLUTIDE [Suspect]
     Active Substance: TEDUGLUTIDE
     Dosage: 3.8 MILLIGRAM (0.05 MG/KG), 4 DOSES PER WEEK
     Route: 065
     Dates: end: 201904
  3. TEDUGLUTIDE [Suspect]
     Active Substance: TEDUGLUTIDE
     Dosage: 2.13 MILLIGRAM (0.03 MG/KG DAILY DOSE) 7 DOSES PER WEEK
     Route: 065
     Dates: end: 20191025
  4. TEDUGLUTIDE [Suspect]
     Active Substance: TEDUGLUTIDE
     Dosage: 2.13 MILLIGRAM (0.03 MG/KG) 5 DOSES PER WEEK
     Route: 065
  5. TYLENOL [Concomitant]
     Active Substance: ACETAMINOPHEN
     Indication: PAIN
     Route: 065
  6. TEDUGLUTIDE [Suspect]
     Active Substance: TEDUGLUTIDE
     Dosage: 3.62 MILLIGRAM (0.05 MG/KG), 7 DOSES PER WEEK
     Route: 065
     Dates: end: 20181219
  7. TEDUGLUTIDE [Suspect]
     Active Substance: TEDUGLUTIDE
     Indication: SHORT-BOWEL SYNDROME
     Dosage: 3.62 MILLIGRAM (0.05 MG/KG), 7 DOSES PER WEEK
     Route: 065
     Dates: end: 20181107
  8. TEDUGLUTIDE [Suspect]
     Active Substance: TEDUGLUTIDE
     Dosage: 3.62 MILLIGRAM (0.05 MG/KG), 7 DOSES PER WEEK
     Route: 065
     Dates: end: 20181219
  9. ZOFRAN [Concomitant]
     Active Substance: ONDANSETRON HYDROCHLORIDE
     Indication: NAUSEA
     Route: 065
  10. TEDUGLUTIDE [Suspect]
     Active Substance: TEDUGLUTIDE
     Dosage: 3.62 MILLIGRAM (0.05 MG/KG), 7 DOSES PER WEEK
     Route: 065
     Dates: end: 20181219
  11. TEDUGLUTIDE [Suspect]
     Active Substance: TEDUGLUTIDE
     Dosage: 2.13 MILLIGRAM (0.03 MG/KG DAILY DOSE) 7 DOSES PER WEEK
     Route: 065
     Dates: end: 20191025
  12. TEDUGLUTIDE [Suspect]
     Active Substance: TEDUGLUTIDE
     Dosage: 2.13 MILLIGRAM (0.03 MG/KG) 5 DOSES PER WEEK
     Route: 065
  13. OXYCODONE [Concomitant]
     Active Substance: OXYCODONE
     Indication: PAIN
     Route: 065
  14. VANCOMYCIN [Concomitant]
     Active Substance: VANCOMYCIN
     Dosage: 1000 MILLIGRAM, BID
     Route: 042
     Dates: start: 20200304, end: 20200309
  15. TEDUGLUTIDE [Suspect]
     Active Substance: TEDUGLUTIDE
     Dosage: 3.8 MILLIGRAM (0.05 MG/KG), 4 DOSES PER WEEK
     Route: 065
     Dates: end: 201904
  16. TEDUGLUTIDE [Suspect]
     Active Substance: TEDUGLUTIDE
     Dosage: 2.13 MILLIGRAM (0.03 MG/KG) 5 DOSES PER WEEK
     Route: 065
  17. TEDUGLUTIDE [Suspect]
     Active Substance: TEDUGLUTIDE
     Indication: SHORT-BOWEL SYNDROME
     Dosage: 3.62 MILLIGRAM (0.05 MG/KG), 7 DOSES PER WEEK
     Route: 065
     Dates: end: 20181107
  18. TEDUGLUTIDE [Suspect]
     Active Substance: TEDUGLUTIDE
     Dosage: 3.8 MILLIGRAM (0.05 MG/KG), 4 DOSES PER WEEK
     Route: 065
     Dates: end: 201904
  19. TEDUGLUTIDE [Suspect]
     Active Substance: TEDUGLUTIDE
     Dosage: 3.35 MILLIGRAM (0.05 MG/KG), 4 DOSES PER WEEK
     Route: 065
  20. TEDUGLUTIDE [Suspect]
     Active Substance: TEDUGLUTIDE
     Dosage: 3.35 MILLIGRAM (0.05 MG/KG), 4 DOSES PER WEEK
     Route: 065
  21. TEDUGLUTIDE [Suspect]
     Active Substance: TEDUGLUTIDE
     Dosage: 3.35 MILLIGRAM (0.05 MG/KG), 4 DOSES PER WEEK
     Route: 065
  22. TEDUGLUTIDE [Suspect]
     Active Substance: TEDUGLUTIDE
     Dosage: 3.62 MILLIGRAM (0.05 MG/KG), 7 DOSES PER WEEK
     Route: 065
     Dates: end: 20181219
  23. TEDUGLUTIDE [Suspect]
     Active Substance: TEDUGLUTIDE
     Dosage: 2.13 MILLIGRAM (0.03 MG/KG) 5 DOSES PER WEEK
     Route: 065
  24. TEDUGLUTIDE [Suspect]
     Active Substance: TEDUGLUTIDE
     Dosage: 3.35 MILLIGRAM (0.05 MG/KG), 4 DOSES PER WEEK
     Route: 065
  25. ACTIGALL [Concomitant]
     Active Substance: URSODIOL
     Indication: CHOLANGITIS SCLEROSING
     Dosage: 13 MILLIGRAM/KILOGRAM, QD
     Route: 048
     Dates: start: 20200421
  26. TEDUGLUTIDE [Suspect]
     Active Substance: TEDUGLUTIDE
     Indication: SHORT-BOWEL SYNDROME
     Dosage: 3.62 MILLIGRAM (0.05 MG/KG), 7 DOSES PER WEEK
     Route: 065
     Dates: end: 20181107
  27. TEDUGLUTIDE [Suspect]
     Active Substance: TEDUGLUTIDE
     Dosage: 3.8 MILLIGRAM (0.05 MG/KG), 4 DOSES PER WEEK
     Route: 065
     Dates: end: 201904
  28. TEDUGLUTIDE [Suspect]
     Active Substance: TEDUGLUTIDE
     Dosage: 2.13 MILLIGRAM (0.03 MG/KG DAILY DOSE) 7 DOSES PER WEEK
     Route: 065
     Dates: end: 20191025
  29. TEDUGLUTIDE [Suspect]
     Active Substance: TEDUGLUTIDE
     Dosage: 2.13 MILLIGRAM (0.03 MG/KG DAILY DOSE) 7 DOSES PER WEEK
     Route: 065
     Dates: end: 20191025
  30. VANCOMYCIN [Concomitant]
     Active Substance: VANCOMYCIN
     Indication: BACTERAEMIA
     Dosage: 15 MILLIGRAM/KILOGRAM
     Route: 042
     Dates: start: 20200303, end: 20200304
  31. CEFEPIME [Concomitant]
     Active Substance: CEFEPIME HYDROCHLORIDE
     Indication: BACTERAEMIA
     Dosage: 1 GRAM, TID
     Route: 042
     Dates: start: 20200303, end: 20200304

REACTIONS (3)
  - Abdominal pain [Recovered/Resolved]
  - Enterocutaneous fistula [Recovered/Resolved]
  - Abdominal distension [Recovered/Resolved]

NARRATIVE: CASE EVENT DATE: 20171029
